FAERS Safety Report 8043600-2 (Version None)
Quarter: 2012Q1

REPORT INFORMATION
  Report Type: 
  Country: None (occurrence: None)
  Receive Date: 20120112
  Receipt Date: 20120104
  Transmission Date: 20120608
  Serious: Yes (Other)
  Sender: FDA-Public Use
  Company Number: JP-BAXTER-2011BH038393

PATIENT
  Age: 3 Year
  Sex: Male
  Weight: 11 kg

DRUGS (5)
  1. ADVATE [Suspect]
     Route: 042
     Dates: start: 20071018, end: 20080417
  2. EPINASTINE HYDROCHLORIDE [Concomitant]
     Indication: DERMATITIS ATOPIC
     Route: 048
  3. ADVATE [Suspect]
     Indication: FACTOR VIII DEFICIENCY
     Route: 042
     Dates: start: 20070418, end: 20071017
  4. ADVATE [Suspect]
     Route: 042
     Dates: start: 20080418, end: 20081017
  5. ONON [Concomitant]
     Indication: HYPERSENSITIVITY
     Route: 048

REACTIONS (2)
  - FEBRILE CONVULSION [None]
  - NASOPHARYNGITIS [None]
